FAERS Safety Report 21535489 (Version 2)
Quarter: 2023Q1

REPORT INFORMATION
  Report Type: Spontaneous
  Country: CA (occurrence: CA)
  Receive Date: 20221101
  Receipt Date: 20230216
  Transmission Date: 20230418
  Serious: Yes (Other)
  Sender: FDA-Public Use
  Company Number: CA-JNJFOC-20221053341

PATIENT
  Age: 42 Year
  Sex: Male

DRUGS (2)
  1. REMICADE [Suspect]
     Active Substance: INFLIXIMAB
     Indication: Crohn^s disease
     Route: 041
  2. INFLECTRA [Suspect]
     Active Substance: INFLIXIMAB-DYYB
     Indication: Crohn^s disease
     Route: 042
     Dates: start: 20220518

REACTIONS (11)
  - Intestinal obstruction [Unknown]
  - Paraesthesia [Not Recovered/Not Resolved]
  - Illness [Unknown]
  - Gastrointestinal stenosis [Unknown]
  - Abdominal pain [Unknown]
  - Arthralgia [Unknown]
  - Constipation [Unknown]
  - Pain [Unknown]
  - Drug level above therapeutic [Unknown]
  - Intentional product use issue [Unknown]
  - Off label use [Unknown]

NARRATIVE: CASE EVENT DATE: 20220101
